FAERS Safety Report 21640509 (Version 1)
Quarter: 2022Q4

REPORT INFORMATION
  Report Type: Report from Study
  Country: US (occurrence: US)
  Receive Date: 20221124
  Receipt Date: 20221124
  Transmission Date: 20230113
  Serious: No
  Sender: FDA-Public Use
  Company Number: US-ABBVIE-4159865

PATIENT
  Sex: Female

DRUGS (4)
  1. HUMIRA [Suspect]
     Active Substance: ADALIMUMAB
     Indication: Crohn^s disease
     Dosage: FORM STRENGTH 40 MG/CITRATE FREE
     Route: 058
  2. Moderna [Concomitant]
     Indication: COVID-19 immunisation
     Dosage: 1ST DOSE MODERNA
     Route: 030
     Dates: start: 20210115, end: 20210115
  3. Moderna [Concomitant]
     Indication: COVID-19 immunisation
     Dosage: 2ND DOSE  MODERNA
     Route: 030
     Dates: start: 20210212, end: 20210212
  4. Moderna [Concomitant]
     Indication: COVID-19 immunisation
     Dosage: BOOSTER DOSE  MODERNA
     Route: 030
     Dates: start: 20220907, end: 20220907

REACTIONS (2)
  - Subcutaneous abscess [Recovering/Resolving]
  - Hidradenitis [Recovering/Resolving]
